FAERS Safety Report 7334914-X (Version None)
Quarter: 2011Q1

REPORT INFORMATION
  Report Type: 
  Country: None (occurrence: None)
  Receive Date: 20110307
  Receipt Date: 20110302
  Transmission Date: 20110831
  Serious: Yes (Hospitalization)
  Sender: FDA-Public Use
  Company Number: JP-ROCHE-738893

PATIENT
  Sex: Female
  Weight: 54 kg

DRUGS (2)
  1. CAPECITABINE [Suspect]
     Indication: COLON CANCER METASTATIC
     Dosage: DRUG NAME: XELODA 300
     Route: 048
     Dates: start: 20100609, end: 20100610
  2. OXALIPLATIN [Suspect]
     Indication: COLON CANCER METASTATIC
     Route: 041
     Dates: start: 20100609, end: 20100609

REACTIONS (2)
  - VISUAL FIELD DEFECT [None]
  - PHOTOPSIA [None]
